FAERS Safety Report 11203299 (Version 1)
Quarter: 2015Q2

REPORT INFORMATION
  Report Type: Spontaneous
  Country: US (occurrence: None)
  Receive Date: 20150608
  Receipt Date: 20150608
  Transmission Date: 20150821
  Serious: No
  Sender: FDA-Public Use
  Company Number: HYP201504-000044

PATIENT
  Age: 4 Year
  Sex: Male

DRUGS (4)
  1. RAVICTI [Suspect]
     Active Substance: GLYCEROL PHENYLBUTYRATE
     Indication: ARGININOSUCCINATE LYASE DEFICIENCY
     Dates: start: 201305
  2. ARGININE (ARGININE) [Concomitant]
  3. ANIMEX (MOCLOBEMIDE) [Concomitant]
  4. IRON (IRON) [Concomitant]
     Active Substance: IRON

REACTIONS (1)
  - Ammonia increased [None]

NARRATIVE: CASE EVENT DATE: 20150402
